FAERS Safety Report 18745467 (Version 3)
Quarter: 2021Q1

REPORT INFORMATION
  Report Type: Report from Study
  Country: US (occurrence: US)
  Receive Date: 20210115
  Receipt Date: 20210204
  Transmission Date: 20210419
  Serious: Yes (Hospitalization, Other)
  Sender: FDA-Public Use
  Company Number: NVSC2021US007991

PATIENT
  Age: 63 Year
  Sex: Female
  Weight: 108.96 kg

DRUGS (31)
  1. METFORMIN [Suspect]
     Active Substance: METFORMIN HYDROCHLORIDE
     Indication: PRODUCT USED FOR UNKNOWN INDICATION
     Route: 065
  2. BACTRIM [Suspect]
     Active Substance: SULFAMETHOXAZOLE\TRIMETHOPRIM
     Indication: URINARY TRACT INFECTION
     Dosage: 4 DF, QD (FORM STRENGTH: 400?80 MG)
     Route: 048
     Dates: start: 2018
  3. GLIPIZIDE. [Concomitant]
     Active Substance: GLIPIZIDE
     Indication: DIABETES MELLITUS
     Dosage: 5 MG(MAY TAKE NONE?4 A DAY DEPENDING ON READING)
     Route: 048
     Dates: start: 2005
  4. GLIPIZIDE. [Concomitant]
     Active Substance: GLIPIZIDE
     Dosage: 20 MG, BID
     Route: 048
  5. METHYLSULFONYLMETHANE [Concomitant]
     Active Substance: DIMETHYL SULFONE
     Indication: ARTHRITIS
  6. LUCENTIS [Suspect]
     Active Substance: RANIBIZUMAB
     Indication: RETINAL OEDEMA
     Dosage: 1 DF, QMO
     Route: 050
     Dates: start: 201504
  7. TURMERIC [Concomitant]
     Active Substance: HERBALS\TURMERIC
     Indication: MENTAL DISORDER
     Dosage: 500 MG, BID
     Route: 048
     Dates: start: 2005
  8. VITAMIN B COMPLEX [Concomitant]
     Active Substance: CYANOCOBALAMIN\DEXPANTHENOL\NIACINAMIDE\PYRIDOXINE HYDROCHLORIDE\RIBOFLAVIN 5^-PHOSPHATE SODIUM\THIAMINE HYDROCHLORIDE\VITAMIN B COMPLEX
     Indication: PRODUCT USED FOR UNKNOWN INDICATION
     Dosage: 1 DF, QW(NERVE AND FINGERNAIL HEALTHWILL TAKE 1?2 WEEKLY)
     Route: 048
     Dates: start: 1995
  9. ASCORBIC ACID. [Concomitant]
     Active Substance: ASCORBIC ACID
     Indication: PRODUCT USED FOR UNKNOWN INDICATION
     Dosage: 1000 MG, BID(IMMUNE SUPPORT AND ALLERGIESWILL TAKE 1?2 WEEKLY)
     Route: 048
     Dates: start: 1995
  10. VITAMIN D3 [Concomitant]
     Active Substance: CHOLECALCIFEROL
     Indication: PRODUCT USED FOR UNKNOWN INDICATION
     Dosage: 1000 MG, QD(DAILY IMMUNE AND VITAMIN D)
     Route: 048
     Dates: start: 2015
  11. METHYLSULFONYLMETHANE [Concomitant]
     Active Substance: DIMETHYL SULFONE
     Indication: INFLAMMATION
     Dosage: 100 MG, QD
     Route: 048
     Dates: start: 2005
  12. TESSALON [Concomitant]
     Active Substance: BENZONATATE
     Indication: COUGH
     Dosage: 100 MG(WILL TAKE 1?2 )
     Route: 048
  13. LUCENTIS [Suspect]
     Active Substance: RANIBIZUMAB
     Indication: TYPE 2 DIABETES MELLITUS
     Dosage: TAKEN AS NEEDED SINGULSR SHOT
     Route: 050
  14. LUCENTIS [Suspect]
     Active Substance: RANIBIZUMAB
     Indication: TRACTIONAL RETINAL DETACHMENT
  15. ADVIL [Concomitant]
     Active Substance: IBUPROFEN
     Indication: INFLAMMATION
     Dosage: 800 MG, QD
     Route: 048
     Dates: start: 2005
  16. COLACE [Concomitant]
     Active Substance: DOCUSATE SODIUM
     Indication: CONSTIPATION
     Dosage: 100 MG, QID
     Route: 048
     Dates: start: 202004
  17. PABA [Concomitant]
     Active Substance: AMINOBENZOIC ACID
     Indication: PRODUCT USED FOR UNKNOWN INDICATION
     Dosage: 1000 MG, QD(PROTECT SKIN)
     Route: 048
     Dates: start: 1975
  18. ALBUTEROL. [Concomitant]
     Active Substance: ALBUTEROL
     Indication: ASTHMA
     Dosage: 8 MG
     Route: 048
  19. LISINOPRIL. [Concomitant]
     Active Substance: LISINOPRIL
     Indication: HYPERTENSION
     Dosage: 20 MG, BID
     Route: 048
     Dates: start: 2005
  20. CINNAMOMUM SPP. [Concomitant]
     Indication: DIABETES MELLITUS
     Dosage: 1000 MG, BID
     Route: 048
     Dates: start: 2005
  21. ALLEGRA [Concomitant]
     Active Substance: FEXOFENADINE HYDROCHLORIDE
     Indication: HYPERSENSITIVITY
     Dosage: WILL TAKE 1?2
     Route: 048
  22. MILK THISTLE PLUS [Concomitant]
     Active Substance: DIETARY SUPPLEMENT\HERBALS\MILK THISTLE
     Indication: PRODUCT USED FOR UNKNOWN INDICATION
     Dosage: 140 MG, BID(SUPPORT LIVER FUNCTION)
     Route: 048
     Dates: start: 2015
  23. FIBER [Suspect]
     Active Substance: PSYLLIUM HUSK
     Indication: CONSTIPATION
     Dosage: 5 MG(WILL TAKE ONE EVERY OTHER DAY AS NEEDED)
     Route: 048
     Dates: start: 2020
  24. ACTOS [Suspect]
     Active Substance: PIOGLITAZONE HYDROCHLORIDE
     Indication: PRODUCT USED FOR UNKNOWN INDICATION
     Route: 065
  25. HALDOL [Suspect]
     Active Substance: HALOPERIDOL
     Indication: PRODUCT USED FOR UNKNOWN INDICATION
     Dosage: UNK
     Route: 065
  26. LUCENTIS [Suspect]
     Active Substance: RANIBIZUMAB
     Indication: DIABETIC RETINOPATHY
  27. VERAPAMIL [Concomitant]
     Active Substance: VERAPAMIL HYDROCHLORIDE
     Indication: HYPERTENSION
     Dosage: 120 MG, QID
     Route: 048
     Dates: start: 2005
  28. MAGNESIUM [Concomitant]
     Active Substance: MAGNESIUM
     Indication: PRODUCT USED FOR UNKNOWN INDICATION
     Dosage: 400 MG, QD
     Route: 048
     Dates: start: 2015
  29. GLUCOSAMINE AND CHONDROITIN [Concomitant]
     Active Substance: CHONDROITIN SULFATE (BOVINE)\GLUCOSAMINE HYDROCHLORIDE
     Indication: ARTHRITIS
     Dosage: 2 DF, QD(1500?1200MG)
     Route: 048
     Dates: start: 2005
  30. COLLOIDAL SILVER [Concomitant]
     Active Substance: SILVER
     Indication: INFECTION
     Dosage: 30 MG
     Route: 065
     Dates: start: 2010
  31. COLLOIDAL SILVER [Concomitant]
     Active Substance: SILVER
     Indication: SWELLING

REACTIONS (20)
  - Pain [Not Recovered/Not Resolved]
  - Glare [Unknown]
  - Intervertebral disc displacement [Unknown]
  - Eye contusion [Not Recovered/Not Resolved]
  - Weight increased [Unknown]
  - Anaphylactic shock [Unknown]
  - Muscle spasms [Unknown]
  - Nephrolithiasis [Unknown]
  - Palpitations [Unknown]
  - Urosepsis [Unknown]
  - Hallucination [Unknown]
  - Ocular hyperaemia [Recovered/Resolved]
  - Dyspnoea [Unknown]
  - Eye pain [Recovered/Resolved]
  - Sciatica [Unknown]
  - Loss of consciousness [Unknown]
  - Drug hypersensitivity [Unknown]
  - Urinary tract infection [Unknown]
  - Anaphylactic reaction [Unknown]
  - Weight decreased [Unknown]

NARRATIVE: CASE EVENT DATE: 2017
